FAERS Safety Report 9483802 (Version 1)
Quarter: 2013Q3

REPORT INFORMATION
  Report Type: Spontaneous
  Country: BR (occurrence: BR)
  Receive Date: 20130828
  Receipt Date: 20130828
  Transmission Date: 20140515
  Serious: Yes (Other)
  Sender: FDA-Public Use
  Company Number: BR-PFIZER INC-2013246949

PATIENT
  Age: 64 Year
  Sex: Male
  Weight: 90 kg

DRUGS (2)
  1. LIPITOR [Suspect]
     Indication: BLOOD CHOLESTEROL
     Dosage: 5 MG (HALF TABLET OF 10MG), 1X/DAY (AT NIGHT)
     Route: 048
     Dates: start: 20030826
  2. SOMALGIN CARDIO [Concomitant]
     Dosage: 1 DF, 1X/DAY
     Dates: start: 20061201

REACTIONS (1)
  - Cerebrovascular accident [Unknown]
